FAERS Safety Report 5831736-3 (Version None)
Quarter: 2008Q3

REPORT INFORMATION
  Report Type: 
  Country: None (occurrence: None)
  Receive Date: 20080803
  Receipt Date: 20080723
  Transmission Date: 20090109
  Serious: Yes (Hospitalization)
  Sender: FDA-Public Use
  Company Number: PHHY2008JP10629

PATIENT
  Sex: Female
  Weight: 61 kg

DRUGS (10)
  1. FEMARA [Suspect]
     Indication: BREAST CANCER RECURRENT
     Dosage: 2.5 MG, QD
     Route: 048
     Dates: start: 20070401
  2. FEMARA [Suspect]
     Indication: METASTASES TO BONE
  3. ZOMETA [Suspect]
     Indication: METASTASES TO BONE
     Dosage: 4MG IN PHYSIOLOGICAL SALINE
     Route: 042
     Dates: start: 20070401, end: 20070701
  4. ZOMETA [Suspect]
     Dosage: 4 MG/DAY
     Route: 042
     Dates: start: 20070701
  5. BARACLUDE [Suspect]
     Indication: CHRONIC HEPATITIS
     Dosage: 0.5 MG/DAY
     Route: 048
     Dates: start: 20080403
  6. VOLTAREN - SLOW RELEASE ^NOVARTIS^ [Concomitant]
     Indication: METASTASES TO BONE
     Dosage: 75 MG
     Route: 048
     Dates: start: 20070501
  7. OMEPRAL [Concomitant]
     Indication: GASTRITIS
     Dosage: 20 MG
     Route: 048
     Dates: start: 20070920
  8. URSO 250 [Concomitant]
     Indication: CHRONIC HEPATITIS
     Dosage: 300 MG
     Route: 048
     Dates: start: 20070920
  9. MAGMITT KENEI [Concomitant]
     Indication: CONSTIPATION
     Dosage: 660 MG
     Route: 048
     Dates: start: 20070907
  10. MUCOSTA [Concomitant]
     Indication: GASTRITIS
     Dosage: 300 MG
     Route: 048
     Dates: start: 20071005

REACTIONS (18)
  - ASPARTATE AMINOTRANSFERASE INCREASED [None]
  - BLOOD ALKALINE PHOSPHATASE INCREASED [None]
  - BLOOD CHOLESTEROL INCREASED [None]
  - BLOOD GLUCOSE INCREASED [None]
  - BLOOD LACTATE DEHYDROGENASE INCREASED [None]
  - CARDIAC FAILURE CONGESTIVE [None]
  - DYSPNOEA [None]
  - ECHOCARDIOGRAM ABNORMAL [None]
  - EOSINOPHIL COUNT DECREASED [None]
  - GAMMA-GLUTAMYLTRANSFERASE INCREASED [None]
  - HAEMOGLOBIN DECREASED [None]
  - LEFT VENTRICULAR DYSFUNCTION [None]
  - MALAISE [None]
  - MITRAL VALVE INCOMPETENCE [None]
  - PALPITATIONS [None]
  - PULMONARY HYPERTENSION [None]
  - RED BLOOD CELL COUNT DECREASED [None]
  - STRIDOR [None]
